FAERS Safety Report 6605118-0 (Version None)
Quarter: 2010Q1

REPORT INFORMATION
  Report Type: 
  Country: None (occurrence: None)
  Receive Date: 20100226
  Receipt Date: 20100217
  Transmission Date: 20100710
  Serious: Yes (Death, Hospitalization)
  Sender: FDA-Public Use
  Company Number: GB-ELI_LILLY_AND_COMPANY-GB200911006381

PATIENT
  Sex: Male
  Weight: 124 kg

DRUGS (6)
  1. BYETTA [Suspect]
     Indication: OBESITY
     Dosage: 5 UG, 2/D
     Route: 058
     Dates: start: 20090101, end: 20090201
  2. BYETTA [Suspect]
     Dosage: 10 UG, 2/D
     Route: 058
     Dates: start: 20090201, end: 20090317
  3. HUMALOG [Concomitant]
     Dosage: 60 U, 3/D
     Route: 058
  4. METFORMIN HYDROCHLORIDE [Concomitant]
     Dosage: 1 G, 3/D
     Route: 048
  5. ATORVASTATIN CALCIUM [Concomitant]
     Dosage: 20 MG, UNKNOWN
     Route: 048
  6. RAMIPRIL [Concomitant]
     Dosage: 5 MG, DAILY (1/D)
     Route: 048

REACTIONS (4)
  - CHOLESTASIS [None]
  - HEPATIC FAILURE [None]
  - OFF LABEL USE [None]
  - RENAL FAILURE ACUTE [None]
